FAERS Safety Report 12501839 (Version 1)
Quarter: 2016Q2

REPORT INFORMATION
  Report Type: Spontaneous
  Country: US (occurrence: US)
  Receive Date: 20160627
  Receipt Date: 20160627
  Transmission Date: 20160815
  Serious: Yes (Other)
  Sender: FDA-Public Use
  Company Number: US-BAYER-2016-119956

PATIENT
  Sex: Male

DRUGS (1)
  1. KOGENATE FS [Suspect]
     Active Substance: ANTIHEMOPHILIC FACTOR, HUMAN RECOMBINANT
     Indication: FACTOR VIII DEFICIENCY
     Dosage: 1028 UNITS (1 VIAL) EVERY MONDAY, WEDNESDAY FRIDAY AND AS NEEDED FOR BLEED
     Route: 042

REACTIONS (2)
  - Haemarthrosis [Recovered/Resolved]
  - Joint injury [Recovered/Resolved]
